FAERS Safety Report 19045858 (Version 1)
Quarter: 2021Q1

REPORT INFORMATION
  Report Type: Report from Study
  Country: DE (occurrence: DE)
  Receive Date: 20210323
  Receipt Date: 20210323
  Transmission Date: 20210420
  Serious: Yes (Hospitalization)
  Sender: FDA-Public Use
  Company Number: DE-EISAI MEDICAL RESEARCH-EC-2021-089878

PATIENT
  Age: 63 Year
  Sex: Male

DRUGS (7)
  1. LENVIMA [Suspect]
     Active Substance: LENVATINIB
     Indication: HEPATOCELLULAR CARCINOMA
     Route: 048
     Dates: start: 201812, end: 201901
  2. LENVIMA [Suspect]
     Active Substance: LENVATINIB
     Route: 048
     Dates: start: 201902, end: 201903
  3. LENVIMA [Suspect]
     Active Substance: LENVATINIB
     Route: 048
     Dates: start: 201903, end: 201904
  4. LENVIMA [Suspect]
     Active Substance: LENVATINIB
     Route: 048
     Dates: start: 201904, end: 201910
  5. LENVIMA [Suspect]
     Active Substance: LENVATINIB
     Dosage: 4 MG/DAY ALTERNATING WITH 8 MG/DAY ON 1?2 DAYS/WEEK
     Route: 048
  6. LENVIMA [Suspect]
     Active Substance: LENVATINIB
     Route: 048
     Dates: start: 2019, end: 201902
  7. LENVIMA [Suspect]
     Active Substance: LENVATINIB
     Route: 048
     Dates: start: 201911

REACTIONS (18)
  - Nausea [Unknown]
  - Urinary tract infection [Unknown]
  - Apathy [Unknown]
  - Gastritis [Unknown]
  - Arthralgia [Unknown]
  - Hypertension [Unknown]
  - Constipation [Unknown]
  - Dry skin [Unknown]
  - Asthenia [Unknown]
  - General physical health deterioration [Recovering/Resolving]
  - Hypothyroidism [Unknown]
  - Fatigue [Unknown]
  - Gastric ulcer [Recovered/Resolved]
  - Weight decreased [Unknown]
  - Pain [Unknown]
  - Dehydration [Unknown]
  - Decreased appetite [Unknown]
  - Chest pain [Unknown]

NARRATIVE: CASE EVENT DATE: 201901
